FAERS Safety Report 19422691 (Version 1)
Quarter: 2021Q2

REPORT INFORMATION
  Report Type: Spontaneous
  Country: US (occurrence: US)
  Receive Date: 20210616
  Receipt Date: 20210616
  Transmission Date: 20210717
  Serious: Yes (Hospitalization)
  Sender: FDA-Public Use
  Company Number: None

PATIENT
  Sex: Male

DRUGS (1)
  1. INV CASIRIVIMAB 1200 MG ? IMDEVIMAB 1200 MG [Suspect]
     Active Substance: CASIRIVIMAB\IMDEVIMAB
     Route: 041
     Dates: start: 20210610

REACTIONS (5)
  - Pain [None]
  - Pyrexia [None]
  - Hepatic enzyme increased [None]
  - Lung infiltration [None]
  - White blood cell count increased [None]

NARRATIVE: CASE EVENT DATE: 20210610
